FAERS Safety Report 9807950 (Version 1)
Quarter: 2014Q1

REPORT INFORMATION
  Report Type: Spontaneous
  Country: CL (occurrence: CL)
  Receive Date: 20140110
  Receipt Date: 20140110
  Transmission Date: 20141002
  Serious: Yes (Other)
  Sender: FDA-Public Use
  Company Number: CL-PFIZER INC-2014006350

PATIENT
  Age: 87 Year
  Sex: Female

DRUGS (8)
  1. XALATAN [Suspect]
     Indication: GLAUCOMA
     Dosage: 1 DF, 1X/DAY
     Route: 047
     Dates: start: 1993
  2. LOSARTAN [Concomitant]
  3. ASPIRINA [Concomitant]
  4. EXFORGE [Concomitant]
  5. CARVEDILOL [Concomitant]
  6. METFORMIN [Concomitant]
  7. INSULIN [Concomitant]
  8. SPIRONOLACTONE [Concomitant]

REACTIONS (3)
  - Cataract [Recovered/Resolved]
  - Blindness [Recovered/Resolved]
  - Visual acuity reduced [Not Recovered/Not Resolved]
